FAERS Safety Report 4422294-9 (Version None)
Quarter: 2004Q3

REPORT INFORMATION
  Report Type: 
  Country: None (occurrence: None)
  Receive Date: 20040713
  Receipt Date: 20031015
  Transmission Date: 20050211
  Serious: Yes (Hospitalization)
  Sender: FDA-Public Use
  Company Number: PROG00203003010

PATIENT
  Age: 48 Year
  Sex: Female
  Weight: 146.5118 kg

DRUGS (5)
  1. PROMETRIUM [Suspect]
     Indication: ANAEMIA
     Dosage: 200 MG DAILY PO
     Route: 048
     Dates: start: 20030919, end: 20031006
  2. PROMETRIUM [Suspect]
     Indication: MENORRHAGIA
     Dosage: 200 MG DAILY PO
     Route: 048
     Dates: start: 20030919, end: 20031006
  3. PROMETRIUM [Suspect]
     Indication: UTERINE LEIOMYOMA
     Dosage: 200 MG DAILY PO
     Route: 048
     Dates: start: 20030919, end: 20031006
  4. VITAMIN C (VITAMIN C) [Concomitant]
  5. IORN (IRON) [Concomitant]

REACTIONS (2)
  - EMBOLISM [None]
  - PULMONARY EMBOLISM [None]
